FAERS Safety Report 18710630 (Version 1)
Quarter: 2021Q1

REPORT INFORMATION
  Report Type: Other
  Country: US (occurrence: US)
  Receive Date: 20210107
  Receipt Date: 20210107
  Transmission Date: 20210419
  Serious: Yes (Other)
  Sender: FDA-Public Use
  Company Number: US-ROCHE-2741892

PATIENT
  Sex: Female

DRUGS (3)
  1. ACTEMRA [Suspect]
     Active Substance: TOCILIZUMAB
  2. ACTEMRA [Suspect]
     Active Substance: TOCILIZUMAB
  3. ACTEMRA [Suspect]
     Active Substance: TOCILIZUMAB
     Indication: GIANT CELL ARTERITIS
     Dosage: FORM STRENGTH: 162 MG / 0.9 ML PRE?FILLED SYRINGE, INJECT 162 MG SUBCUTANEOUSLY EVERY WEEK
     Route: 058

REACTIONS (3)
  - Off label use [Unknown]
  - Spinal compression fracture [Unknown]
  - Intentional product misuse [Unknown]
